FAERS Safety Report 6398210-X (Version None)
Quarter: 2009Q4

REPORT INFORMATION
  Report Type: 
  Country: None (occurrence: None)
  Receive Date: 20091013
  Receipt Date: 20090930
  Transmission Date: 20100525
  Serious: Yes (Hospitalization, Other)
  Sender: FDA-Public Use
  Company Number: PHHY2009JP42252

PATIENT
  Age: 74 Year
  Sex: Male

DRUGS (26)
  1. NEORAL [Suspect]
     Indication: IDIOPATHIC PULMONARY FIBROSIS
     Dosage: 120 MG
     Route: 048
  2. PIRESPA [Suspect]
     Indication: IDIOPATHIC PULMONARY FIBROSIS
     Dosage: 200 MG, TID
     Route: 048
     Dates: start: 20090210
  3. PIRESPA [Suspect]
     Dosage: 400 MG, TID
     Route: 048
     Dates: start: 20090303
  4. PIRESPA [Suspect]
     Dosage: 600 MG, TID
     Route: 048
     Dates: start: 20090413, end: 20090717
  5. PREDONINE [Suspect]
     Indication: IDIOPATHIC PULMONARY FIBROSIS
     Dosage: 15 MG, UNK
     Route: 048
  6. PREDONINE [Suspect]
     Dosage: 20 MG, UNK
     Route: 048
     Dates: start: 20090204
  7. PREDONINE [Suspect]
     Dosage: 15 MG DAILY
     Dates: start: 20090525
  8. LASIX [Concomitant]
     Dosage: 30 MG DAILY
  9. PARIET [Concomitant]
     Dosage: 10 MG, UNK
  10. LIPITOR [Concomitant]
  11. BLOPRESS [Concomitant]
     Dosage: 4 MG DAILY
  12. BLOPRESS [Concomitant]
     Dosage: 8 MG DAILY
  13. TEPRENONE [Concomitant]
  14. GASCON [Concomitant]
  15. DIASTASE, TAKA [Concomitant]
  16. BERIZYM [Concomitant]
  17. LENDORMIN [Concomitant]
  18. ASPIRIN [Concomitant]
     Dosage: 100 MG, UNK
  19. LACTOBACILLUS BIFIDUS [Concomitant]
  20. MAGNESIUM OXIDE [Concomitant]
     Dosage: 2 G DAILY
  21. TELEMINSOFT [Concomitant]
  22. ACTONEL [Concomitant]
  23. HIRUDOID [Concomitant]
  24. AZUNOL [Concomitant]
  25. POSTERISAN [Concomitant]
  26. OXYGEN [Concomitant]
     Dosage: UNK
     Dates: start: 20070913

REACTIONS (11)
  - ABDOMINAL DISCOMFORT [None]
  - BRONCHITIS [None]
  - CONSTIPATION [None]
  - DECREASED APPETITE [None]
  - HYPERTENSION [None]
  - MALAISE [None]
  - NEUROPATHY PERIPHERAL [None]
  - ORAL CANDIDIASIS [None]
  - OROPHARYNGEAL PAIN [None]
  - PERIPHERAL CIRCULATORY FAILURE [None]
  - UPPER RESPIRATORY TRACT INFLAMMATION [None]
